FAERS Safety Report 21072241 (Version 1)
Quarter: 2022Q3

REPORT INFORMATION
  Report Type: Spontaneous
  Country: US (occurrence: US)
  Receive Date: 20220712
  Receipt Date: 20220712
  Transmission Date: 20221026
  Serious: No
  Sender: FDA-Public Use
  Company Number: US-FOUNDATIONCONSUMERHC-2022-US-007036

PATIENT
  Age: 44 Year
  Sex: Female
  Weight: 72.58 kg

DRUGS (1)
  1. PLAN B ONE-STEP [Suspect]
     Active Substance: LEVONORGESTREL
     Indication: Post coital contraception
     Dosage: 1 TABLET DISSOLVED IN MOUTH, 1 TIME
     Route: 048
     Dates: start: 20220325, end: 20220325

REACTIONS (1)
  - Product use complaint [Recovered/Resolved]

NARRATIVE: CASE EVENT DATE: 20220325
